FAERS Safety Report 4694479-8 (Version None)
Quarter: 2005Q2

REPORT INFORMATION
  Report Type: 
  Country: None (occurrence: None)
  Receive Date: 20050620
  Receipt Date: 20050330
  Transmission Date: 20051028
  Serious: Yes (Other)
  Sender: FDA-Public Use
  Company Number: PHBS2005JP04538

PATIENT
  Age: 17 Year
  Sex: Male

DRUGS (1)
  1. CYCLOSPORINE [Suspect]
     Indication: BONE MARROW TRANSPLANT

REACTIONS (10)
  - CONVULSION [None]
  - EPIGASTRIC DISCOMFORT [None]
  - EPILEPSY [None]
  - GRAND MAL CONVULSION [None]
  - MYOCLONUS [None]
  - PALPITATIONS [None]
  - PETIT MAL EPILEPSY [None]
  - SIMPLE PARTIAL SEIZURES [None]
  - TONIC CONVULSION [None]
  - TOXIC INDUCED ENCEPHALOPATHY [None]
